FAERS Safety Report 5757786-3 (Version None)
Quarter: 2008Q2

REPORT INFORMATION
  Report Type: 
  Country: None (occurrence: None)
  Receive Date: 20080603
  Receipt Date: 20080520
  Transmission Date: 20081010
  Serious: Yes (Hospitalization)
  Sender: FDA-Public Use
  Company Number: PHHO2008HK06536

PATIENT
  Sex: Female
  Weight: 55.3 kg

DRUGS (11)
  1. FLUVASTATIN SODIUM [Suspect]
     Indication: HYPERLIPIDAEMIA
     Dosage: UNK
     Dates: end: 20060312
  2. GABAPENTIN [Suspect]
     Indication: PARAESTHESIA
     Dosage: UNK
     Dates: end: 20060312
  3. GABAPENTIN [Suspect]
     Indication: OSTEOPOROSIS
  4. METOPROLOL TARTRATE [Concomitant]
     Indication: HYPERTENSION
  5. NIFEDIPINE [Concomitant]
     Indication: HYPERTENSION
  6. ASPIRIN [Concomitant]
     Indication: PROPHYLAXIS
  7. CALTRATE +D [Concomitant]
  8. ASPIRIN [Concomitant]
  9. AMITRIPTYLINE HCL [Concomitant]
  10. CLOTRIMAZOLE [Concomitant]
  11. HERBAL PREPARATION [Concomitant]

REACTIONS (2)
  - DRUG INTERACTION [None]
  - LIVER FUNCTION TEST ABNORMAL [None]
